FAERS Safety Report 23879764 (Version 3)
Quarter: 2024Q3

REPORT INFORMATION
  Report Type: Spontaneous
  Country: US (occurrence: US)
  Receive Date: 20240521
  Receipt Date: 20240902
  Transmission Date: 20241017
  Serious: No
  Sender: ASTELLAS
  Company Number: US-ASTELLAS-2024US010654

PATIENT
  Age: 66 Year
  Sex: Female

DRUGS (2)
  1. VEOZAH [Suspect]
     Active Substance: FEZOLINETANT
     Indication: Hyperhidrosis
     Dosage: 45 MG, ONCE DAILY
     Route: 048
     Dates: start: 202403, end: 202404
  2. VEOZAH [Suspect]
     Active Substance: FEZOLINETANT
     Indication: Hot flush

REACTIONS (4)
  - Abdominal distension [Unknown]
  - Flatulence [Unknown]
  - Abdominal pain [Unknown]
  - Constipation [Unknown]

NARRATIVE: CASE EVENT DATE: 20240401
